FAERS Safety Report 4263778-6 (Version None)
Quarter: 2004Q1

REPORT INFORMATION
  Report Type: 
  Country: None (occurrence: None)
  Receive Date: 20040102
  Receipt Date: 20031217
  Transmission Date: 20041129
  Serious: Yes (Other)
  Sender: FDA-Public Use
  Company Number: USA031254952

PATIENT
  Age: 77 Year
  Sex: Female

DRUGS (1)
  1. EVISTA [Suspect]
     Dates: start: 20001101, end: 20031001

REACTIONS (1)
  - ENDOMETRIAL CANCER [None]
